FAERS Safety Report 12648242 (Version 1)
Quarter: 2016Q3

REPORT INFORMATION
  Report Type: Spontaneous
  Country: US (occurrence: US)
  Receive Date: 20160812
  Receipt Date: 20160812
  Transmission Date: 20161109
  Serious: No
  Sender: FDA-Public Use
  Company Number: US-009507513-1607USA006326

PATIENT
  Sex: Male

DRUGS (9)
  1. ZOCOR [Concomitant]
     Active Substance: SIMVASTATIN
     Dosage: 10 MG, IN THE EVENING ONCE A DAY
  2. CARVEDILOL. [Concomitant]
     Active Substance: CARVEDILOL
     Dosage: 25 MG TABLET 1 TABLET WITH FOOD TWICE A DAY
  3. XARELTO [Concomitant]
     Active Substance: RIVAROXABAN
     Dosage: 20 MG TABLET 1 TABLET WITH FOOD ONCE A DAY
  4. APAP EXTRA [Concomitant]
     Dosage: 500 MG, 1 TABLET AS NEEDED EVERY 6 HRS
  5. FOLIC ACID. [Concomitant]
     Active Substance: FOLIC ACID
     Dosage: 1 MG TABLET 1 TABLET ONCE A DAY
  6. VALACYCLOVIR HYDROCHLORIDE. [Concomitant]
     Active Substance: VALACYCLOVIR HYDROCHLORIDE
  7. PRINIVIL [Suspect]
     Active Substance: LISINOPRIL
     Indication: CHRONIC LEFT VENTRICULAR FAILURE
     Dosage: REFILL, 100 MG TABLET 1 TABLET ONCE A DAY, 90 DAYS, 90, REFILLS 5
     Route: 048
  8. COUMADIN [Concomitant]
     Active Substance: WARFARIN SODIUM
     Dosage: 4 MG, QD
  9. METHOTREXATE. [Concomitant]
     Active Substance: METHOTREXATE
     Dosage: 2.5 MG TABLET 7 TABLETS ONCE A WEEK

REACTIONS (1)
  - Cough [Unknown]
